FAERS Safety Report 18110610 (Version 1)
Quarter: 2020Q3

REPORT INFORMATION
  Report Type: Report from Study
  Country: DE (occurrence: DE)
  Receive Date: 20200804
  Receipt Date: 20200804
  Transmission Date: 20201103
  Serious: Yes (Hospitalization)
  Sender: FDA-Public Use
  Company Number: DE-ACTELION-A-NJ2020-207848

PATIENT
  Age: 79 Year

DRUGS (1)
  1. VENTAVIS [Suspect]
     Active Substance: ILOPROST
     Indication: PULMONARY ARTERIAL HYPERTENSION
     Dosage: 10 MG/ML, 6 TIMES, QD
     Route: 055
     Dates: start: 20191114

REACTIONS (2)
  - Hospitalisation [Unknown]
  - Investigation [Unknown]
